FAERS Safety Report 8381215 (Version 2)
Quarter: 2013Q1

REPORT INFORMATION
  Report Type: Spontaneous
  Country: US (occurrence: US)
  Receive Date: 20120129
  Receipt Date: 20130129
  Transmission Date: 20140127
  Serious: No
  Sender: FDA-Public Use
  Company Number: US-ABBOTT-11P-163-0855921-00

PATIENT
  Sex: Male

DRUGS (2)
  1. HUMIRA 40 MG/0.8 ML PEN [Suspect]
     Indication: PSORIASIS
     Dates: start: 20110624, end: 20110916
  2. CLAMATOSOL [Concomitant]
     Indication: PSORIASIS

REACTIONS (5)
  - Rectal lesion [Not Recovered/Not Resolved]
  - Anal skin tags [Not Recovered/Not Resolved]
  - Anorectal human papilloma virus infection [Not Recovered/Not Resolved]
  - Papilloma viral infection [Not Recovered/Not Resolved]
  - Anorectal human papilloma virus infection [None]
